FAERS Safety Report 8049923-5 (Version None)
Quarter: 2012Q1

REPORT INFORMATION
  Report Type: 
  Country: None (occurrence: None)
  Receive Date: 20120117
  Receipt Date: 20120112
  Transmission Date: 20120608
  Serious: Yes (Death, Hospitalization, Other)
  Sender: FDA-Public Use
  Company Number: AU-B.I. PHARMACEUTICALS,INC./RIDGEFIELD-2011-AU-01462AU

PATIENT
  Age: 83 Year
  Sex: Male

DRUGS (7)
  1. CRYSTALLINE VIT B12 INJ [Concomitant]
  2. ACIMAX [Concomitant]
  3. PANADOL OSTEO [Concomitant]
  4. METOPROLOL TARTRATE [Concomitant]
  5. IRBESARTAN + HYDROCHLOROTHIAZIDE [Concomitant]
  6. PRADAXA [Suspect]
     Dates: start: 20110701
  7. LANOXIN [Concomitant]

REACTIONS (5)
  - CEREBROVASCULAR ACCIDENT [None]
  - ACUTE MYOCARDIAL INFARCTION [None]
  - FALL [None]
  - HYPOVOLAEMIA [None]
  - HAEMORRHAGE [None]
